FAERS Safety Report 5891642-5 (Version None)
Quarter: 2008Q3

REPORT INFORMATION
  Report Type: 
  Country: None (occurrence: None)
  Receive Date: 20080922
  Receipt Date: 20080910
  Transmission Date: 20090109
  Serious: Yes (Death, Hospitalization, Other)
  Sender: FDA-Public Use
  Company Number: US-PFIZER INC-2008047301

PATIENT
  Sex: Female

DRUGS (1)
  1. LYRICA [Suspect]
     Indication: PAIN
     Dates: start: 20070815, end: 20080310

REACTIONS (4)
  - ACCIDENTAL OVERDOSE [None]
  - DEATH [None]
  - HALLUCINATION [None]
  - RESPIRATORY DISORDER [None]
